FAERS Safety Report 7323443-5 (Version None)
Quarter: 2011Q1

REPORT INFORMATION
  Report Type: 
  Country: None (occurrence: None)
  Receive Date: 20110201
  Receipt Date: 20101117
  Transmission Date: 20110831
  Serious: Yes (Other)
  Sender: FDA-Public Use
  Company Number: AMAG201000410

PATIENT
  Age: 29 Year
  Sex: Female
  Weight: 71.7 kg

DRUGS (5)
  1. TRAZODONE (TRAZODONE) [Concomitant]
  2. SILDENAFIL (SILDENAFIL CITRATE) [Concomitant]
  3. FERAHEME [Suspect]
     Indication: IRON DEFICIENCY ANAEMIA
     Dosage: 180 MG, SINGLE, INTRAVENOUS
     Route: 042
     Dates: start: 20101116, end: 20101116
  4. NIFEDIPINE A (NIFEDIPINE) [Concomitant]
  5. HYDROXYCHLOROQUINE SULFATE [Concomitant]

REACTIONS (4)
  - DYSPNOEA [None]
  - RASH [None]
  - ANAPHYLACTIC REACTION [None]
  - BLOOD PRESSURE INCREASED [None]
